FAERS Safety Report 8831728 (Version 1)
Quarter: 2012Q4

REPORT INFORMATION
  Report Type: 
  Country: US (occurrence: US)
  Receive Date: 20121009
  Receipt Date: 20121009
  Transmission Date: 20130627
  Serious: No
  Sender: FDA-Public Use
  Company Number: US-ASTRAZENECA-2012SE74946

PATIENT
  Age: 57 Year
  Sex: Female

DRUGS (2)
  1. VIMOVO [Suspect]
     Route: 048
  2. ANTIBIOTICS [Concomitant]

REACTIONS (5)
  - Polyarthritis [Unknown]
  - Feeling abnormal [Unknown]
  - Pain in extremity [Unknown]
  - Tremor [Unknown]
  - Epigastric discomfort [Unknown]
